FAERS Safety Report 7372515 (Version 5)
Quarter: 2013Q1

REPORT INFORMATION
  Report Type: Spontaneous
  Country: US (occurrence: US)
  Receive Date: 20100430
  Receipt Date: 20130301
  Transmission Date: 20140127
  Serious: Yes (Other)
  Sender: FDA-Public Use
  Company Number: US-ASTRAZENECA-2010SE00260

PATIENT
  Age: 50 Year
  Sex: Female

DRUGS (2)
  1. NEXIUM [Suspect]
     Route: 048
  2. CRESTOR [Suspect]
     Route: 048

REACTIONS (9)
  - Ankle fracture [Unknown]
  - Osteoporosis [Unknown]
  - Road traffic accident [Unknown]
  - Back injury [Unknown]
  - Fall [Unknown]
  - Hypertension [Unknown]
  - Blood cholesterol increased [Unknown]
  - Multiple fractures [Unknown]
  - Anxiety [Unknown]
